FAERS Safety Report 13327791 (Version 1)
Quarter: 2017Q1

REPORT INFORMATION
  Report Type: Spontaneous
  Country: US (occurrence: US)
  Receive Date: 20170313
  Receipt Date: 20170313
  Transmission Date: 20170428
  Serious: No
  Sender: FDA-Public Use
  Company Number: US-JNJFOC-20170127887

PATIENT
  Sex: Female
  Weight: 81.65 kg

DRUGS (2)
  1. WOMENS ROGAINE UNSCENTED [Suspect]
     Active Substance: MINOXIDIL
     Route: 061
  2. WOMENS ROGAINE UNSCENTED [Suspect]
     Active Substance: MINOXIDIL
     Indication: ALOPECIA
     Dosage: APPLIED LIBERALLY, 1X EVERY OTHER DAY
     Route: 061
     Dates: start: 20161111, end: 20170116

REACTIONS (3)
  - Product use issue [Unknown]
  - Wrong technique in product usage process [Unknown]
  - Paraesthesia [Unknown]
